FAERS Safety Report 4424939-6 (Version None)
Quarter: 2004Q3

REPORT INFORMATION
  Report Type: 
  Country: None (occurrence: None)
  Receive Date: 20040809
  Receipt Date: 20040726
  Transmission Date: 20050211
  Serious: Yes (Hospitalization)
  Sender: FDA-Public Use
  Company Number: US-JNJFOC-20040706974

PATIENT
  Age: 58 Year
  Sex: Male
  Weight: 142.4295 kg

DRUGS (10)
  1. INFLIXIMAB (INFLIXIMAB, RECOMBINANT) LYOPHILIZED POWDER [Suspect]
     Indication: RHEUMATOID ARTHRITIS
     Dosage: INTRAVENOUS
     Route: 042
     Dates: start: 20030611, end: 20030901
  2. PREDNISONE [Concomitant]
  3. FOLIC ACID [Concomitant]
  4. VIOXX [Concomitant]
  5. PROPYLTHIOURACIL [Concomitant]
  6. METHOTREXATE SODIUM [Concomitant]
  7. OXYCONTIN [Concomitant]
  8. HYDROCODONE [Concomitant]
  9. MULTI-VITAMIN [Concomitant]
  10. CITRUCEL (METHYLCELLULOSE) [Concomitant]

REACTIONS (1)
  - SINUS OPERATION [None]
